FAERS Safety Report 10038223 (Version 1)
Quarter: 2014Q1

REPORT INFORMATION
  Report Type: Spontaneous
  Country: US (occurrence: US)
  Receive Date: 20140326
  Receipt Date: 20140326
  Transmission Date: 20141002
  Serious: Yes (Hospitalization)
  Sender: FDA-Public Use
  Company Number: US-SA-2014SA033427

PATIENT
  Age: 76 Year
  Sex: Female

DRUGS (4)
  1. LANTUS SOLOSTAR [Suspect]
     Indication: TYPE 2 DIABETES MELLITUS
     Dosage: DOSE:20 UNIT(S)
     Route: 065
     Dates: start: 2013, end: 20140312
  2. LANTUS SOLOSTAR [Suspect]
     Indication: TYPE 2 DIABETES MELLITUS
     Dosage: DOSE:20 UNIT(S)
     Route: 065
  3. SOLOSTAR [Concomitant]
     Indication: DEVICE THERAPY
     Dates: start: 2013, end: 20140312
  4. SOLOSTAR [Concomitant]
     Indication: DEVICE THERAPY

REACTIONS (2)
  - Myocardial infarction [Not Recovered/Not Resolved]
  - Drug dose omission [Unknown]
